FAERS Safety Report 4592346-1 (Version None)
Quarter: 2005Q1

REPORT INFORMATION
  Report Type: 
  Country: None (occurrence: None)
  Receive Date: 20050228
  Receipt Date: 20041201
  Transmission Date: 20050727
  Serious: No
  Sender: FDA-Public Use
  Company Number: US-BRISTOL-MYERS SQUIBB COMPANY-12795803

PATIENT
  Sex: Female

DRUGS (1)
  1. ABILIFY [Suspect]
     Indication: SCHIZOAFFECTIVE DISORDER

REACTIONS (2)
  - BLOOD CREATINE PHOSPHOKINASE INCREASED [None]
  - PAIN IN EXTREMITY [None]
